FAERS Safety Report 5381245-3 (Version None)
Quarter: 2007Q3

REPORT INFORMATION
  Report Type: 
  Country: None (occurrence: None)
  Receive Date: 20070706
  Receipt Date: 20070627
  Transmission Date: 20080115
  Serious: Yes (Hospitalization, Other)
  Sender: FDA-Public Use
  Company Number: US-PFIZER INC-2007053888

PATIENT
  Sex: Female
  Weight: 61.2 kg

DRUGS (8)
  1. CHANTIX [Suspect]
     Indication: SMOKING CESSATION THERAPY
  2. DILAUDID [Concomitant]
     Route: 048
  3. DILAUDID [Concomitant]
     Route: 037
  4. LEXAPRO [Concomitant]
  5. SEROQUEL [Concomitant]
  6. XANAX [Concomitant]
  7. ASPIRIN [Concomitant]
  8. DURAGESIC-100 [Concomitant]

REACTIONS (3)
  - CONSTIPATION [None]
  - DEHYDRATION [None]
  - VOMITING [None]
